FAERS Safety Report 9903579 (Version 1)
Quarter: 2014Q1

REPORT INFORMATION
  Report Type: Report from Study
  Country: US (occurrence: US)
  Receive Date: 20140217
  Receipt Date: 20140217
  Transmission Date: 20141002
  Serious: Yes (Hospitalization)
  Sender: FDA-Public Use
  Company Number: US-ABBVIE-14P-163-1201506-00

PATIENT
  Age: 25 Year
  Sex: Male

DRUGS (1)
  1. DEPAKOTE [Suspect]
     Indication: CONVULSION
     Dates: start: 201312, end: 201312

REACTIONS (1)
  - Mood swings [Recovered/Resolved]
